FAERS Safety Report 18586062 (Version 1)
Quarter: 2020Q4

REPORT INFORMATION
  Report Type: Report from Study
  Country: JP (occurrence: JP)
  Receive Date: 20201207
  Receipt Date: 20201207
  Transmission Date: 20210114
  Serious: Yes (Hospitalization, Other)
  Sender: FDA-Public Use
  Company Number: JP-JNJFOC-A-CH2016-147278

PATIENT
  Age: 13 Year
  Sex: Female

DRUGS (18)
  1. OPSUMIT [Suspect]
     Active Substance: MACITENTAN
     Indication: PULMONARY ARTERIAL HYPERTENSION
     Dosage: 10 MG, QD
     Route: 048
     Dates: start: 20170125, end: 20171101
  2. ENALAPRIL [Concomitant]
     Active Substance: ENALAPRIL
     Route: 048
     Dates: start: 20170428
  3. OPSUMIT [Suspect]
     Active Substance: MACITENTAN
     Dosage: 5 MG, BID
     Route: 048
     Dates: start: 20171102
  4. CANDESARTAN. [Concomitant]
     Active Substance: CANDESARTAN
     Indication: LEFT VENTRICULAR FAILURE
     Route: 048
     Dates: start: 20190422
  5. ALDACTONE A [Concomitant]
     Active Substance: SPIRONOLACTONE
     Route: 048
     Dates: start: 20170427
  6. ENALAPRIL [Concomitant]
     Active Substance: ENALAPRIL
     Indication: LEFT VENTRICULAR FAILURE
     Route: 048
  7. BAYASPIRIN [Concomitant]
     Active Substance: ASPIRIN
     Route: 048
     Dates: start: 20170728
  8. BERAPROST [Concomitant]
     Active Substance: BERAPROST
     Indication: PULMONARY ARTERIAL HYPERTENSION
     Route: 048
     Dates: start: 20161227
  9. AZOSEMIDE [Concomitant]
     Active Substance: AZOSEMIDE
     Indication: LEFT VENTRICULAR FAILURE
     Route: 048
     Dates: start: 20190503
  10. ALDACTONE A [Concomitant]
     Active Substance: SPIRONOLACTONE
     Indication: LEFT VENTRICULAR FAILURE
     Route: 048
     Dates: start: 20170426
  11. FUROSEMIDE. [Concomitant]
     Active Substance: FUROSEMIDE
     Indication: LEFT VENTRICULAR FAILURE
     Dosage: MG
     Route: 048
     Dates: start: 20160616
  12. BAYASPIRIN [Concomitant]
     Active Substance: ASPIRIN
     Indication: TRICUSPID VALVE INCOMPETENCE
     Route: 048
     Dates: start: 20161228
  13. ADCIRCA [Concomitant]
     Active Substance: TADALAFIL
     Indication: PULMONARY ARTERIAL HYPERTENSION
     Route: 048
     Dates: start: 20180717
  14. PREDONINE [Suspect]
     Active Substance: PREDNISOLONE
     Indication: PROTEIN-LOSING GASTROENTEROPATHY
     Dosage: 15 MG, QD
     Route: 048
     Dates: start: 20160512
  15. WARFARIN [Concomitant]
     Active Substance: WARFARIN
     Indication: TRICUSPID VALVE INCOMPETENCE
     Route: 048
  16. SELARA [Concomitant]
     Active Substance: EPLERENONE
     Indication: LEFT VENTRICULAR FAILURE
     Route: 048
     Dates: start: 20190530
  17. OPSUMIT [Suspect]
     Active Substance: MACITENTAN
     Indication: PULMONARY ARTERIAL HYPERTENSION
     Dosage: 5 MG, QD
     Route: 048
     Dates: start: 20160607, end: 20170124
  18. ALFACALCIDOL [Concomitant]
     Active Substance: ALFACALCIDOL
     Indication: OSTEOPOROSIS
     Route: 048
     Dates: start: 20170420

REACTIONS (7)
  - Off label use [Unknown]
  - Osteoporosis [Recovering/Resolving]
  - Platelet count decreased [Not Recovered/Not Resolved]
  - White blood cell count decreased [Not Recovered/Not Resolved]
  - Pain [Recovering/Resolving]
  - Anaemia [Not Recovered/Not Resolved]
  - Spinal compression fracture [Recovering/Resolving]

NARRATIVE: CASE EVENT DATE: 20160811
